FAERS Safety Report 18228077 (Version 2)
Quarter: 2021Q3

REPORT INFORMATION
  Report Type: Report from Study
  Country: JP (occurrence: JP)
  Receive Date: 20200903
  Receipt Date: 20210723
  Transmission Date: 20211014
  Serious: Yes (Hospitalization)
  Sender: FDA-Public Use
  Company Number: JP-ASTRAZENECA-2020SF11525

PATIENT
  Age: 65 Year
  Sex: Female
  Weight: 54 kg

DRUGS (2)
  1. IMFINZI [Suspect]
     Active Substance: DURVALUMAB
     Indication: NON-SMALL CELL LUNG CANCER STAGE IIIB
     Route: 042
     Dates: start: 20200130, end: 20200326
  2. IMFINZI [Suspect]
     Active Substance: DURVALUMAB
     Indication: NON-SMALL CELL LUNG CANCER STAGE IIIB
     Route: 042
     Dates: start: 20191029, end: 20191029

REACTIONS (2)
  - Organising pneumonia [Recovered/Resolved]
  - Radiation pneumonitis [Recovering/Resolving]

NARRATIVE: CASE EVENT DATE: 20191105
